FAERS Safety Report 4628464-9 (Version None)
Quarter: 2005Q2

REPORT INFORMATION
  Report Type: 
  Country: None (occurrence: None)
  Receive Date: 20050404
  Receipt Date: 20050323
  Transmission Date: 20051028
  Serious: Yes (Life-Threatening, Hospitalization)
  Sender: FDA-Public Use
  Company Number: RS005012-J

PATIENT
  Age: 68 Year
  Sex: Male
  Weight: 56 kg

DRUGS (13)
  1. RABEPRAZOLE SODIUM [Suspect]
     Indication: GASTRIC ULCER
     Dosage: 20 MG, 1 IN 1 D, ORAL
     Route: 048
     Dates: start: 20050108, end: 20050112
  2. SUCRALFATE [Concomitant]
  3. ALLOID G (SODIUM ALGINATE) [Concomitant]
  4. ACETANOL (ACEBUTOLOL HYDROCHLORIDE) [Concomitant]
  5. MINIPRESS [Concomitant]
  6. ALLOZYM (ALLOPURINOL) [Concomitant]
  7. CONIEL (BENIDIPINE HYDROCHLORIDE) [Concomitant]
  8. EURODIN (ESTAZOLAM) [Concomitant]
  9. URSODIOL [Concomitant]
  10. NITROL R (GLYCERYL TRINITRATE) [Concomitant]
  11. ADONA (CARBAZOCHROME SODIUM SULFONATE) [Concomitant]
  12. HICEE (ASCORBIC ACID) [Concomitant]
  13. KARIKUROMONE (KALLIDINOGENASE) [Concomitant]

REACTIONS (7)
  - ANTINUCLEAR ANTIBODY POSITIVE [None]
  - ANURIA [None]
  - BLOOD BILIRUBIN INCREASED [None]
  - BLOOD LACTATE DEHYDROGENASE INCREASED [None]
  - HAEMOLYTIC ANAEMIA [None]
  - NEPHRITIS INTERSTITIAL [None]
  - RENAL FAILURE ACUTE [None]
